FAERS Safety Report 9805113 (Version 1)
Quarter: 2014Q1

REPORT INFORMATION
  Report Type: Spontaneous
  Country: US (occurrence: US)
  Receive Date: 20140109
  Receipt Date: 20140109
  Transmission Date: 20141002
  Serious: No
  Sender: FDA-Public Use
  Company Number: US-BIOGENIDEC-2014BI001592

PATIENT
  Sex: Male

DRUGS (1)
  1. TYSABRI [Suspect]
     Indication: MULTIPLE SCLEROSIS
     Route: 042
     Dates: start: 20080310, end: 20121127

REACTIONS (8)
  - Pain [Unknown]
  - Sensory disturbance [Unknown]
  - Limb discomfort [Unknown]
  - Central nervous system lesion [Unknown]
  - Gait disturbance [Unknown]
  - Ataxia [Unknown]
  - Paraesthesia [Unknown]
  - Multiple sclerosis [Unknown]
